FAERS Safety Report 8773212 (Version 2)
Quarter: 2018Q1

REPORT INFORMATION
  Report Type: Spontaneous
  Country: IT (occurrence: IT)
  Receive Date: 20120907
  Receipt Date: 20180319
  Transmission Date: 20180509
  Serious: Yes (Other)
  Sender: FDA-Public Use
  Company Number: IT-BAXTER-2012BAX015840

PATIENT
  Age: 41 Year
  Sex: Male

DRUGS (1)
  1. SUPRANE [Suspect]
     Active Substance: DESFLURANE
     Indication: ACCIDENTAL EXPOSURE TO PRODUCT
     Route: 031
     Dates: start: 20120818, end: 20120818

REACTIONS (4)
  - Accidental exposure to product [Unknown]
  - Eye irritation [Unknown]
  - Blindness transient [Unknown]
  - Corneal abrasion [Unknown]

NARRATIVE: CASE EVENT DATE: 20120818
